FAERS Safety Report 6581749-1 (Version None)
Quarter: 2010Q1

REPORT INFORMATION
  Report Type: 
  Country: None (occurrence: None)
  Receive Date: 20100215
  Receipt Date: 20100201
  Transmission Date: 20100710
  Serious: Yes (Hospitalization)
  Sender: FDA-Public Use
  Company Number: DE-MYLANLABS-2009S1003481

PATIENT
  Age: 63 Year
  Sex: Female

DRUGS (9)
  1. AMITRIPTYLINE HCL [Suspect]
     Indication: DEPRESSION
     Route: 048
     Dates: start: 20040101, end: 20080819
  2. LISINOPRIL [Suspect]
     Indication: HYPERTENSION
     Route: 048
     Dates: start: 20010101
  3. SIMVASTATIN [Suspect]
     Indication: HYPERLIPIDAEMIA
     Route: 048
     Dates: start: 20000101
  4. BISOPROLOL [Suspect]
     Indication: HYPERTENSION
     Route: 048
     Dates: start: 19950101
  5. PRESOMEN /00073001/ [Suspect]
     Indication: HORMONE REPLACEMENT THERAPY
     Route: 048
     Dates: start: 20040101, end: 20080911
  6. VALPROIC ACID [Suspect]
     Indication: BIPOLAR I DISORDER
     Route: 048
     Dates: start: 20080820, end: 20080911
  7. ASPIRIN [Suspect]
     Indication: CORONARY ARTERY DISEASE
     Route: 048
     Dates: start: 20010101
  8. INFLUSPLIT SSW [Concomitant]
     Indication: INFLUENZA IMMUNISATION
     Route: 058
     Dates: start: 20080908, end: 20080908
  9. JUNIK [Concomitant]
     Indication: ASTHMA
     Dates: start: 20050101

REACTIONS (1)
  - LIVER INJURY [None]
